FAERS Safety Report 7224463-1 (Version None)
Quarter: 2011Q1

REPORT INFORMATION
  Report Type: 
  Country: None (occurrence: None)
  Receive Date: 20110113
  Receipt Date: 20110110
  Transmission Date: 20110831
  Serious: No
  Sender: FDA-Public Use
  Company Number: US-PFIZER INC-2011006289

PATIENT
  Sex: Female
  Weight: 72.6 kg

DRUGS (3)
  1. PREMARIN [Suspect]
     Dosage: 0.625 MG, 1X/DAY
     Route: 048
  2. PREMARIN [Suspect]
     Dosage: 0.3 MG, DAILY
     Route: 048
  3. PREMARIN [Suspect]
     Dosage: 0.9 MG, UNK
     Route: 048

REACTIONS (4)
  - HYPERSENSITIVITY [None]
  - MUSCULOSKELETAL DISCOMFORT [None]
  - ASTHENIA [None]
  - POSTURE ABNORMAL [None]
